FAERS Safety Report 4548839-6 (Version None)
Quarter: 2004Q4

REPORT INFORMATION
  Report Type: 
  Country: None (occurrence: None)
  Receive Date: 20041227
  Receipt Date: 20041007
  Transmission Date: 20050328
  Serious: No
  Sender: FDA-Public Use
  Company Number: 04P-163-0276811-00

PATIENT
  Age: 72 Year
  Sex: Female
  Weight: 77.1115 kg

DRUGS (9)
  1. HUMIRA [Suspect]
     Indication: RHEUMATOID ARTHRITIS
     Dosage: 40 MG, 1 IN 2 WK, SUBCUTANEOUS
     Route: 058
     Dates: start: 20040910
  2. ETODOLAC [Concomitant]
  3. PREDNISONE [Concomitant]
  4. LORAZEPAM [Concomitant]
  5. FLUTICASONE PROPIONATE [Concomitant]
  6. VICODIN [Concomitant]
  7. LEVOTHYROXINE SODIUM [Concomitant]
  8. ELMERON [Concomitant]
  9. ADVAIR DISKUS 100/50 [Concomitant]

REACTIONS (4)
  - ARTHRALGIA [None]
  - CYSTITIS [None]
  - MYALGIA [None]
  - SINUSITIS [None]
